FAERS Safety Report 23566064 (Version 2)
Quarter: 2024Q1

REPORT INFORMATION
  Report Type: Other
  Country: DE (occurrence: None)
  Receive Date: 20240226
  Receipt Date: 20240227
  Transmission Date: 20240410
  Serious: No
  Sender: FDA-Public Use
  Company Number: DE-ROCHE-3515277

PATIENT
  Age: 55 Year
  Sex: Female

DRUGS (17)
  1. OCRELIZUMAB [Suspect]
     Active Substance: OCRELIZUMAB
     Indication: Relapsing multiple sclerosis
     Route: 042
     Dates: start: 20220602
  2. OCRELIZUMAB [Suspect]
     Active Substance: OCRELIZUMAB
     Route: 042
     Dates: start: 20221208
  3. CARBAMAZEPINE [Concomitant]
     Active Substance: CARBAMAZEPINE
     Indication: Trigeminal neuralgia
     Dosage: DOSE: 400?DOSE FREQUENCY: BID (TWICE A DAY)
     Route: 048
     Dates: start: 20211208
  4. BISOPROLOL [Concomitant]
     Active Substance: BISOPROLOL\BISOPROLOL FUMARATE
     Indication: Hypertension
     Route: 048
     Dates: start: 2003, end: 20240104
  5. ASPIRIN [Concomitant]
     Active Substance: ASPIRIN
     Indication: Cardiovascular disorder
     Route: 048
     Dates: start: 2003
  6. AMLODIPINE\BISOPROLOL [Concomitant]
     Active Substance: AMLODIPINE\BISOPROLOL
     Indication: Hypertension
     Dosage: DOSE: 5/5 MG
     Route: 048
     Dates: start: 20240104
  7. DIMETHINDENE MALEATE [Concomitant]
     Active Substance: DIMETHINDENE MALEATE
     Route: 042
     Dates: start: 20220602, end: 20220602
  8. DIMETHINDENE MALEATE [Concomitant]
     Active Substance: DIMETHINDENE MALEATE
     Route: 042
     Dates: start: 20220616, end: 20220616
  9. DIMETHINDENE MALEATE [Concomitant]
     Active Substance: DIMETHINDENE MALEATE
     Route: 042
     Dates: start: 20221208, end: 20221208
  10. DIMETHINDENE MALEATE [Concomitant]
     Active Substance: DIMETHINDENE MALEATE
     Route: 042
     Dates: start: 20230525, end: 20230525
  11. METHYLPREDNISOLONE [Concomitant]
     Active Substance: METHYLPREDNISOLONE
     Route: 042
     Dates: start: 20220602, end: 20220602
  12. METHYLPREDNISOLONE [Concomitant]
     Active Substance: METHYLPREDNISOLONE
     Route: 042
     Dates: start: 20230525, end: 20230525
  13. METHYPRED [Concomitant]
     Route: 042
     Dates: start: 20220616, end: 20220616
  14. METHYPRED [Concomitant]
     Route: 042
     Dates: start: 20221208, end: 20221208
  15. METHYPRED [Concomitant]
     Route: 042
     Dates: start: 20240222, end: 20240222
  16. IBUPROFEN [Concomitant]
     Active Substance: IBUPROFEN
     Indication: Trigeminal neuralgia
     Route: 048
     Dates: start: 20170116
  17. SIMVASTATIN [Concomitant]
     Active Substance: SIMVASTATIN
     Indication: Hypercholesterolaemia
     Route: 048
     Dates: start: 2023

REACTIONS (1)
  - COVID-19 [Recovered/Resolved]

NARRATIVE: CASE EVENT DATE: 20230827
